FAERS Safety Report 21615854 (Version 1)
Quarter: 2022Q4

REPORT INFORMATION
  Report Type: Spontaneous
  Country: CN (occurrence: CN)
  Receive Date: 20221118
  Receipt Date: 20221118
  Transmission Date: 20230113
  Serious: Yes (Other)
  Sender: FDA-Public Use
  Company Number: None

PATIENT
  Age: 58 Year
  Sex: Male
  Weight: 91 kg

DRUGS (8)
  1. CYCLOPHOSPHAMIDE [Suspect]
     Active Substance: CYCLOPHOSPHAMIDE
     Indication: Burkitt^s lymphoma
     Dosage: 0.4 G, QD, POWDER INJECTION, DILUTED WITH 0.9% SODIUM CHLORIDE (100 ML)
     Route: 041
     Dates: start: 20221017, end: 20221021
  2. SODIUM CHLORIDE [Suspect]
     Active Substance: SODIUM CHLORIDE
     Indication: Medication dilution
     Dosage: 100 ML, QD, USED TO DILUTE CYCLOPHOSPHAMIDE (0.4 G)
     Route: 041
     Dates: start: 20221017, end: 20221021
  3. SODIUM CHLORIDE [Suspect]
     Active Substance: SODIUM CHLORIDE
     Dosage: 30 ML, ONCE IN 7 DAYS, (ROUTE: INTRA PUMP INJECTION) USED TO DILUTE VINDESINE SULFATE (4 MG)
     Route: 050
     Dates: start: 20221024, end: 20221024
  4. SODIUM CHLORIDE [Suspect]
     Active Substance: SODIUM CHLORIDE
     Dosage: 250 ML, QD (ROUTE: INTRA PUMP INJECTION), USED TO DILUTE METHOTREXATE (2 G)
     Route: 050
     Dates: start: 20221026, end: 20221026
  5. SODIUM CHLORIDE [Suspect]
     Active Substance: SODIUM CHLORIDE
     Dosage: 500 ML ,QD (ROUTE: INTRA PUMP INJECTION) USED TO DILUTE METHOTREXATE (8 G)
     Route: 050
     Dates: start: 20221027, end: 20221027
  6. METHOTREXATE [Suspect]
     Active Substance: METHOTREXATE
     Indication: Burkitt^s lymphoma
     Dosage: 2 G, QD (ROUTE: INTRA PUMP INJECTION), DILUTED WITH 0.9% SODIUM CHLORIDE (250 ML)
     Route: 050
     Dates: start: 20221026, end: 20221026
  7. METHOTREXATE [Suspect]
     Active Substance: METHOTREXATE
     Dosage: 8 G, QD (ROUTE:  INTRA PUMP INJECTION), DILUTED WITH 0.9% SODIUM CHLORIDE (500 ML)
     Route: 050
     Dates: start: 20221027, end: 20221027
  8. VINDESINE SULFATE [Suspect]
     Active Substance: VINDESINE SULFATE
     Indication: Burkitt^s lymphoma
     Dosage: 4 MG, ONCE IN 7 DAYS, (ROUTE: INTRA PUMP INJECTION) DILUTED WITH 0.9% SODIUM CHLORIDE (30 ML)
     Route: 050
     Dates: start: 20221024, end: 20221024

REACTIONS (1)
  - Myelosuppression [Recovering/Resolving]

NARRATIVE: CASE EVENT DATE: 20221028
